FAERS Safety Report 7525128-9 (Version None)
Quarter: 2011Q2

REPORT INFORMATION
  Report Type: 
  Country: None (occurrence: None)
  Receive Date: 20110606
  Receipt Date: 20110530
  Transmission Date: 20111010
  Serious: Yes (Other)
  Sender: FDA-Public Use
  Company Number: TR-US-EMD SERONO, INC.-7039639

PATIENT
  Sex: Female
  Weight: 66 kg

DRUGS (3)
  1. PROGESTERONE [Concomitant]
  2. FOLBIOL [Concomitant]
  3. REBIF [Suspect]
     Indication: MULTIPLE SCLEROSIS
     Route: 058
     Dates: start: 20100804, end: 20110120

REACTIONS (3)
  - ABORTION SPONTANEOUS [None]
  - ECTOPIC PREGNANCY [None]
  - DRUG EXPOSURE DURING PREGNANCY [None]
